FAERS Safety Report 5316013-1 (Version None)
Quarter: 2007Q2

REPORT INFORMATION
  Report Type: 
  Country: None (occurrence: None)
  Receive Date: 20070503
  Receipt Date: 20070419
  Transmission Date: 20071010
  Serious: Yes (Death)
  Sender: FDA-Public Use
  Company Number: JP-ROCHE-492580

PATIENT
  Age: 39 Year
  Sex: Male
  Weight: 104 kg

DRUGS (3)
  1. TAMIFLU [Suspect]
     Indication: UPPER RESPIRATORY TRACT INFLAMMATION
     Route: 048
     Dates: start: 20070303, end: 20070303
  2. TAMIFLU [Suspect]
     Route: 048
     Dates: start: 20070304, end: 20070304
  3. TAMIFLU [Suspect]
     Route: 048
     Dates: start: 20070305, end: 20070305

REACTIONS (2)
  - DEPRESSED LEVEL OF CONSCIOUSNESS [None]
  - STATUS EPILEPTICUS [None]
